FAERS Safety Report 19813445 (Version 1)
Quarter: 2021Q3

REPORT INFORMATION
  Report Type: Spontaneous
  Country: US (occurrence: US)
  Receive Date: 20210907
  Receipt Date: 20210907
  Transmission Date: 20211014
  Serious: Yes (Other)
  Sender: FDA-Public Use
  Company Number: None

PATIENT
  Age: 63 Year
  Sex: Male
  Weight: 74.39 kg

DRUGS (7)
  1. ASPIRIN. [Concomitant]
     Active Substance: ASPIRIN
  2. ATORVASTATIN [Concomitant]
     Active Substance: ATORVASTATIN
  3. GLIPIZIDE. [Concomitant]
     Active Substance: GLIPIZIDE
  4. LOSARTAN. [Concomitant]
     Active Substance: LOSARTAN
  5. PREDNISONE. [Concomitant]
     Active Substance: PREDNISONE
  6. ABIRATERONE 250MG TABLET [Suspect]
     Active Substance: ABIRATERONE
     Indication: PROSTATE CANCER
     Route: 048
     Dates: start: 20201015
  7. METOPROLOL. [Concomitant]
     Active Substance: METOPROLOL

REACTIONS (2)
  - Drug ineffective [None]
  - Therapy cessation [None]
